FAERS Safety Report 6898445-3 (Version None)
Quarter: 2010Q3

REPORT INFORMATION
  Report Type: 
  Country: None (occurrence: None)
  Receive Date: 20100802
  Receipt Date: 20071022
  Transmission Date: 20110219
  Serious: No
  Sender: FDA-Public Use
  Company Number: US-PFIZER INC-2007072054

PATIENT
  Sex: Male
  Weight: 70.3 kg

DRUGS (2)
  1. LYRICA [Suspect]
     Indication: HERPES ZOSTER
     Dates: start: 20070725, end: 20070827
  2. VALTREX [Suspect]
     Indication: HERPES ZOSTER
     Dates: start: 20070725

REACTIONS (12)
  - CONFUSIONAL STATE [None]
  - DERMATITIS CONTACT [None]
  - DIZZINESS [None]
  - GAIT DISTURBANCE [None]
  - INSOMNIA [None]
  - MUSCLE FATIGUE [None]
  - MYALGIA [None]
  - PAIN [None]
  - RASH PRURITIC [None]
  - SEDATION [None]
  - SOMNOLENCE [None]
  - VISUAL ACUITY REDUCED [None]
